FAERS Safety Report 9297969 (Version 2)
Quarter: 2013Q2

REPORT INFORMATION
  Report Type: Spontaneous
  Country: US (occurrence: US)
  Receive Date: 20130520
  Receipt Date: 20130614
  Transmission Date: 20140414
  Serious: Yes (Death, Hospitalization, Other)
  Sender: FDA-Public Use
  Company Number: US-PFIZER INC-2013151789

PATIENT
  Age: 72 Year
  Sex: Male

DRUGS (4)
  1. REVATIO [Suspect]
     Indication: PULMONARY HYPERTENSION
     Dosage: 20 MG, 3X/DAY
     Route: 048
     Dates: start: 20100730
  2. WARFARIN [Concomitant]
     Indication: VENTRICULAR ASSIST DEVICE INSERTION
     Dosage: 2-3 MG / DAY
  3. DIGOXIN [Concomitant]
     Indication: CARDIAC FAILURE CONGESTIVE
     Dosage: 125 UG / DAY
  4. ALDACTONE [Concomitant]
     Indication: CARDIAC FAILURE CONGESTIVE
     Dosage: 25 MG / PER DAY

REACTIONS (1)
  - Subdural haemorrhage [Fatal]
